FAERS Safety Report 19823712 (Version 1)
Quarter: 2021Q3

REPORT INFORMATION
  Report Type: Spontaneous
  Country: GR (occurrence: GR)
  Receive Date: 20210913
  Receipt Date: 20210913
  Transmission Date: 20211014
  Serious: Yes (Other)
  Sender: FDA-Public Use
  Company Number: GR-MYLANLABS-2021M1060901

PATIENT
  Age: 60 Year
  Sex: Female

DRUGS (2)
  1. OMEGA?3 FATTY ACIDS MYLAN [Suspect]
     Active Substance: OMEGA-3 FATTY ACIDS
     Indication: HYPERTRIGLYCERIDAEMIA
     Dosage: UNK
  2. FENOFIBRATE MYLAN [Suspect]
     Active Substance: FENOFIBRATE
     Indication: HYPERTRIGLYCERIDAEMIA
     Dosage: 145 MILLIGRAM

REACTIONS (1)
  - Drug ineffective [Recovered/Resolved]
